FAERS Safety Report 5300503-1 (Version None)
Quarter: 2007Q2

REPORT INFORMATION
  Report Type: 
  Country: None (occurrence: None)
  Receive Date: 20070413
  Receipt Date: 20070413
  Transmission Date: 20071010
  Serious: Yes (Hospitalization)
  Sender: FDA-Public Use
  Company Number: None

PATIENT
  Sex: Male
  Weight: 78.0187 kg

DRUGS (2)
  1. LENALIDOMIDE 15MGS CELGENE [Suspect]
     Indication: PROSTATE CANCER
     Dosage: 15 MGS QD PO
     Route: 048
     Dates: start: 20061114, end: 20070306
  2. DOCETAXEL 75 MG/M2 SANOFI-AVENTIS [Suspect]
     Indication: PROSTATE CANCER
     Dosage: 75MG/M2 Q THREE WEEKS IV DRIP
     Route: 041
     Dates: start: 20061114, end: 20070306

REACTIONS (6)
  - CARDIAC FAILURE CONGESTIVE [None]
  - ENTEROCOCCAL INFECTION [None]
  - LUNG INFILTRATION [None]
  - MYOCARDIAL INFARCTION [None]
  - MYOCARDIAL ISCHAEMIA [None]
  - PLEURAL EFFUSION [None]
